FAERS Safety Report 8980136 (Version 1)
Quarter: 2012Q4

REPORT INFORMATION
  Report Type: 
  Country: DE (occurrence: DE)
  Receive Date: 20121221
  Receipt Date: 20121221
  Transmission Date: 20130627
  Serious: Yes (Other)
  Sender: FDA-Public Use
  Company Number: GXKR2012DE003878

PATIENT

DRUGS (1)
  1. CLINDAMYCIN HYDROCHLORIDE [Suspect]
     Indication: LIPOMA
     Dosage: 300 mg, TID
     Route: 048
     Dates: start: 20021122, end: 20021125

REACTIONS (13)
  - Polyneuropathy [Recovered/Resolved with Sequelae]
  - Gait disturbance [Not Recovered/Not Resolved]
  - Paraesthesia [Not Recovered/Not Resolved]
  - Inclusion body myositis [Unknown]
  - Atrial fibrillation [Recovering/Resolving]
  - Atrophy [Recovered/Resolved with Sequelae]
  - Muscular weakness [Not Recovered/Not Resolved]
  - Asthenia [Not Recovered/Not Resolved]
  - Flatulence [Unknown]
  - Speech disorder [Recovered/Resolved]
  - Hypertension [Recovering/Resolving]
  - Hypercholesterolaemia [Unknown]
  - Diarrhoea [Unknown]
